FAERS Safety Report 7225969-1 (Version None)
Quarter: 2011Q1

REPORT INFORMATION
  Report Type: 
  Country: None (occurrence: None)
  Receive Date: 20110113
  Receipt Date: 20110107
  Transmission Date: 20110831
  Serious: Yes (Other)
  Sender: FDA-Public Use
  Company Number: US-PFIZER INC-2010159477

PATIENT
  Sex: Female
  Weight: 86.17 kg

DRUGS (2)
  1. ACETAMINOPHEN AND HYDROCODONE BITARTRATE [Concomitant]
     Indication: BACK PAIN
     Dosage: 5/325 MG, 4X/DAY
  2. GABAPENTIN [Suspect]
     Indication: PERIPHERAL NERVE INJURY
     Dosage: 600 MG, 4X/DAY
     Dates: start: 20100101

REACTIONS (3)
  - ORAL BACTERIAL INFECTION [None]
  - GINGIVAL DISORDER [None]
  - ORAL FUNGAL INFECTION [None]
